FAERS Safety Report 9982215 (Version 1)
Quarter: 2014Q1

REPORT INFORMATION
  Report Type: Report from Study
  Country: US (occurrence: US)
  Receive Date: 20140307
  Receipt Date: 20140307
  Transmission Date: 20141002
  Serious: No
  Sender: FDA-Public Use
  Company Number: US-ABBVIE-13P-163-1179482-00

PATIENT
  Age: 56 Year
  Sex: Male

DRUGS (8)
  1. HUMIRA [Suspect]
     Indication: PSORIATIC ARTHROPATHY
     Dates: start: 20131126
  2. NEXIUM [Concomitant]
     Indication: GASTRIC DISORDER
  3. VENLAFAXINE [Concomitant]
     Indication: DEPRESSION
  4. BUSPIRONE HCL [Concomitant]
     Indication: ANXIETY
  5. RISPERIDONE [Concomitant]
     Indication: DEPRESSION
  6. LOSARTAN [Concomitant]
     Indication: HYPERTENSION
     Dosage: 100/25MG DAILY
  7. METOPROLOL TARTRATE [Concomitant]
     Indication: HYPERTENSION
  8. PREDNISONE [Concomitant]
     Indication: PSORIATIC ARTHROPATHY

REACTIONS (3)
  - Injection site pain [Not Recovered/Not Resolved]
  - Injection site pruritus [Not Recovered/Not Resolved]
  - Injection site papule [Not Recovered/Not Resolved]
